FAERS Safety Report 4355142-6 (Version None)
Quarter: 2004Q2

REPORT INFORMATION
  Report Type: 
  Country: None (occurrence: None)
  Receive Date: 20040510
  Receipt Date: 20040427
  Transmission Date: 20050107
  Serious: Yes (Life-Threatening, Disabling)
  Sender: FDA-Public Use
  Company Number: 200413277US

PATIENT
  Sex: 0

DRUGS (1)
  1. LASIX [Suspect]
     Dosage: DOSE: UNK
     Route: 013

REACTIONS (4)
  - ACCIDENTAL EXPOSURE [None]
  - AMPUTATION [None]
  - MEDICATION ERROR [None]
  - NECROSIS [None]
